FAERS Safety Report 14084339 (Version 2)
Quarter: 2017Q4

REPORT INFORMATION
  Report Type: Report from Study
  Country: GR (occurrence: GR)
  Receive Date: 20171013
  Receipt Date: 20171018
  Transmission Date: 20180321
  Serious: Yes (Death, Hospitalization, Other)
  Sender: FDA-Public Use
  Company Number: GR-JNJFOC-20170508582

PATIENT
  Age: 69 Year
  Sex: Female
  Weight: 54 kg

DRUGS (15)
  1. CYTOXAN [Suspect]
     Active Substance: CYCLOPHOSPHAMIDE
     Indication: PLASMA CELL MYELOMA
     Route: 042
     Dates: start: 20170111, end: 20170308
  2. LENALIDOMIDE [Suspect]
     Active Substance: LENALIDOMIDE
     Indication: PLASMA CELL MYELOMA
     Route: 048
     Dates: start: 20170802, end: 20170901
  3. DECADRON [Suspect]
     Active Substance: DEXAMETHASONE
     Indication: PLASMA CELL MYELOMA
     Route: 048
     Dates: start: 20170802
  4. DECADRON [Suspect]
     Active Substance: DEXAMETHASONE
     Indication: PLASMA CELL MYELOMA
     Dosage: DAYS 1 TO 4 OF EACH CYCLE
     Route: 048
     Dates: start: 20170104, end: 20170717
  5. CYTOXAN [Suspect]
     Active Substance: CYCLOPHOSPHAMIDE
     Indication: PLASMA CELL MYELOMA
     Dosage: ON DAYS 1 AND 14 OF EVERY CYCLE
     Route: 042
     Dates: start: 20160808, end: 20161129
  6. FILGRASTIM [Concomitant]
     Active Substance: FILGRASTIM
     Route: 065
  7. EPREX [Concomitant]
     Active Substance: ERYTHROPOIETIN
     Route: 065
  8. ZOLEDRONIC ACID [Concomitant]
     Active Substance: ZOLEDRONIC ACID
     Route: 065
  9. VELCADE [Suspect]
     Active Substance: BORTEZOMIB
     Indication: PLASMA CELL MYELOMA
     Dosage: ON DAYS 1, 4, 8 AND 11 AND ONE WEEK OFF OF A 21 DAY CYCLE
     Route: 058
     Dates: start: 20160808, end: 20161129
  10. EPOETIN [Concomitant]
     Active Substance: ERYTHROPOIETIN
     Route: 065
  11. DARZALEX [Suspect]
     Active Substance: DARATUMUMAB
     Indication: PLASMA CELL MYELOMA
     Dosage: ON DAYS 1, 8 AND 15 WITH ONE WEEK OFF FOR A 28 DAY PERIOD
     Route: 042
     Dates: start: 20170104, end: 20170508
  12. VELCADE [Suspect]
     Active Substance: BORTEZOMIB
     Indication: PLASMA CELL MYELOMA
     Dosage: ON DAYS 1, 4, 8 AND 11 WITH ONE WEEK OFF FOR A 21 DAY CYCLE
     Route: 058
     Dates: start: 20170111
  13. DARZALEX [Suspect]
     Active Substance: DARATUMUMAB
     Indication: PLASMA CELL MYELOMA
     Route: 042
     Dates: start: 20170508
  14. DECADRON [Suspect]
     Active Substance: DEXAMETHASONE
     Indication: PLASMA CELL MYELOMA
     Dosage: ON DAYS 1 TO 4 OF EACH CYCLE
     Route: 048
     Dates: start: 20160808, end: 20161129
  15. CARFILZOMIB [Suspect]
     Active Substance: CARFILZOMIB
     Indication: PLASMA CELL MYELOMA
     Route: 042
     Dates: start: 20170802

REACTIONS (7)
  - Respiratory tract infection [Recovered/Resolved]
  - Renal impairment [Not Recovered/Not Resolved]
  - Thrombocytopenia [Not Recovered/Not Resolved]
  - Acute kidney injury [Fatal]
  - Neutropenia [Recovered/Resolved]
  - Sepsis [Recovered/Resolved]
  - Urinary tract infection [Recovered/Resolved]

NARRATIVE: CASE EVENT DATE: 20170208
